FAERS Safety Report 16405180 (Version 2)
Quarter: 2020Q2

REPORT INFORMATION
  Report Type: Report from Study
  Country: US (occurrence: US)
  Receive Date: 20190607
  Receipt Date: 20200620
  Transmission Date: 20200713
  Serious: Yes (Other)
  Sender: FDA-Public Use
  Company Number: PHEH2019US023431

PATIENT
  Sex: Female

DRUGS (2)
  1. ROCEPHIN IM. [Concomitant]
     Indication: PRODUCT USED FOR UNKNOWN INDICATION
     Route: 065
  2. GILENYA [Suspect]
     Active Substance: FINGOLIMOD HYDROCHLORIDE
     Indication: MULTIPLE SCLEROSIS
     Dosage: 0.5 MG, QD
     Route: 048
     Dates: start: 20190128

REACTIONS (13)
  - Progressive multifocal leukoencephalopathy [Unknown]
  - Influenza like illness [Unknown]
  - Otitis media [Unknown]
  - Nasal congestion [Unknown]
  - Constipation [Unknown]
  - Malaise [Unknown]
  - Conjunctivitis [Unknown]
  - Selective IgG subclass deficiency [Unknown]
  - Neck pain [Unknown]
  - Urinary tract infection [Unknown]
  - Personality change [Unknown]
  - Anxiety [Unknown]
  - Nightmare [Unknown]
